FAERS Safety Report 6562736 (Version 6)
Quarter: 2013Q4

REPORT INFORMATION
  Report Type: Spontaneous
  Country: US (occurrence: US)
  Receive Date: 20080227
  Receipt Date: 20131206
  Transmission Date: 20140711
  Serious: Yes (Other)
  Sender: FDA-Public Use
  Company Number: US-BAYER-200813037NA

PATIENT
  Age: 18 Year
  Sex: Female
  Weight: 63.64 kg

DRUGS (5)
  1. YAZ [Suspect]
     Indication: ACNE
     Dosage: ONE TABLET PER  DAY
     Route: 048
     Dates: start: 200705, end: 200911
  2. YAZ [Suspect]
     Indication: PREMENSTRUAL DYSPHORIC DISORDER
  3. WELLBUTRIN [Concomitant]
     Route: 065
  4. LIBRAX [Concomitant]
     Route: 065
  5. LEVONORGESTREL W/ETHINYLESTRADIOL [Concomitant]
     Route: 065

REACTIONS (9)
  - Metrorrhagia [Unknown]
  - Cholecystitis acute [None]
  - Cholecystectomy [Unknown]
  - Gastrointestinal disorder [Recovered/Resolved]
  - Depression [Not Recovered/Not Resolved]
  - Gastritis [Unknown]
  - Abdominal pain [Unknown]
  - Colitis [Unknown]
  - Diarrhoea [Unknown]
